FAERS Safety Report 14826915 (Version 1)
Quarter: 2018Q2

REPORT INFORMATION
  Report Type: Report from Study
  Country: IT (occurrence: IT)
  Receive Date: 20180430
  Receipt Date: 20180430
  Transmission Date: 20180711
  Serious: Yes (Hospitalization)
  Sender: FDA-Public Use
  Company Number: IT-TAIHO ONCOLOGY INC-US-2017-00313

PATIENT
  Age: 50 Year
  Sex: Male

DRUGS (1)
  1. TAS-102 [Suspect]
     Active Substance: TIPIRACIL HYDROCHLORIDE\TRIFLURIDINE
     Indication: OESOPHAGEAL ADENOCARCINOMA
     Dosage: CYCLE 1
     Route: 048
     Dates: start: 20171019, end: 20171030

REACTIONS (2)
  - Constipation [Recovered/Resolved]
  - Alkalosis hypochloraemic [Recovered/Resolved]

NARRATIVE: CASE EVENT DATE: 20171119
